FAERS Safety Report 16039902 (Version 1)
Quarter: 2019Q1

REPORT INFORMATION
  Report Type: Spontaneous
  Country: CA (occurrence: CA)
  Receive Date: 20190306
  Receipt Date: 20190306
  Transmission Date: 20190418
  Serious: Yes (Other)
  Sender: FDA-Public Use
  Company Number: CA-PFIZER INC-2019095211

PATIENT
  Sex: Male
  Weight: 103 kg

DRUGS (3)
  1. BOSUTINIB [Suspect]
     Active Substance: BOSUTINIB
     Dosage: 500 MG, 1X/DAY
     Route: 048
  2. BOSUTINIB [Suspect]
     Active Substance: BOSUTINIB
     Indication: CHRONIC MYELOID LEUKAEMIA
     Dosage: UNK
     Route: 065
  3. NILOTINIB [Suspect]
     Active Substance: NILOTINIB
     Indication: CHRONIC MYELOID LEUKAEMIA
     Dosage: UNK
     Route: 065

REACTIONS (8)
  - Jaundice [Recovered/Resolved]
  - Peripheral arterial occlusive disease [Recovered/Resolved]
  - Transaminases increased [Recovered/Resolved]
  - Depressed mood [Recovered/Resolved]
  - Musculoskeletal disorder [Recovered/Resolved]
  - Blood bilirubin increased [Recovered/Resolved]
  - Depression [Recovered/Resolved]
  - Intermittent claudication [Recovered/Resolved]
